FAERS Safety Report 22101562 (Version 1)
Quarter: 2023Q1

REPORT INFORMATION
  Report Type: Spontaneous
  Country: CN (occurrence: CN)
  Receive Date: 20230316
  Receipt Date: 20230316
  Transmission Date: 20230417
  Serious: Yes (Hospitalization)
  Sender: FDA-Public Use
  Company Number: CN-009507513-2303CHN004314

PATIENT
  Sex: Male
  Weight: 55 kg

DRUGS (3)
  1. KEYTRUDA [Suspect]
     Active Substance: PEMBROLIZUMAB
     Indication: Lung carcinoma cell type unspecified stage IV
     Dosage: 200MG, ONCE (1/DAY)
     Route: 041
     Dates: start: 20230217, end: 20230217
  2. PARAPLATIN [Suspect]
     Active Substance: CARBOPLATIN
     Indication: Lung carcinoma cell type unspecified stage IV
     Dosage: 450MG, ONCE (1/DAY)
     Route: 041
     Dates: start: 20230217, end: 20230217
  3. PEMETREXED DISODIUM [Suspect]
     Active Substance: PEMETREXED DISODIUM
     Indication: Lung carcinoma cell type unspecified stage IV
     Dosage: 0.8G, ONCE (1/DAY)
     Route: 041
     Dates: start: 20230217, end: 20230217

REACTIONS (4)
  - White blood cell count decreased [Unknown]
  - Granulocyte count decreased [Unknown]
  - Platelet count decreased [Unknown]
  - Neutrophil count abnormal [Unknown]

NARRATIVE: CASE EVENT DATE: 20230222
